FAERS Safety Report 13312544 (Version 1)
Quarter: 2017Q1

REPORT INFORMATION
  Report Type: Spontaneous
  Country: IR (occurrence: IR)
  Receive Date: 20170309
  Receipt Date: 20170309
  Transmission Date: 20170428
  Serious: Yes (Death, Hospitalization)
  Sender: FDA-Public Use
  Company Number: IR-INGENUS PHARMACEUTICALS NJ, LLC-ING201702-000099

PATIENT
  Age: 37 Year
  Sex: Female

DRUGS (2)
  1. PROBENECID AND COLCHICINE [Suspect]
     Active Substance: COLCHICINE\PROBENECID
     Indication: RHEUMATIC DISORDER
     Route: 048
  2. PROBENECID AND COLCHICINE [Suspect]
     Active Substance: COLCHICINE\PROBENECID
     Route: 048

REACTIONS (15)
  - Cardiac arrest [Fatal]
  - Loss of consciousness [Unknown]
  - Cyanosis [Unknown]
  - Leukocytosis [Unknown]
  - Dehydration [Unknown]
  - Toxicity to various agents [Fatal]
  - Dyspnoea [Unknown]
  - Poisoning [Fatal]
  - Metabolic acidosis [Unknown]
  - Pallor [Unknown]
  - Asthenia [Unknown]
  - Intentional overdose [Fatal]
  - Bradycardia [Unknown]
  - Hypotension [Unknown]
  - Abdominal tenderness [Unknown]
